FAERS Safety Report 16930996 (Version 1)
Quarter: 2019Q4

REPORT INFORMATION
  Report Type: Spontaneous
  Country: US (occurrence: US)
  Receive Date: 20191017
  Receipt Date: 20191017
  Transmission Date: 20200122
  Serious: No
  Sender: FDA-Public Use
  Company Number: US-TEVA-2019-US-1123089

PATIENT

DRUGS (1)
  1. TEVA CLONAZEPAM [Suspect]
     Active Substance: CLONAZEPAM
     Dosage: TOOK 2 - .5 MG PILLS A DAY FOR 3 DAYS
     Route: 065

REACTIONS (1)
  - Toxicity to various agents [Unknown]
